FAERS Safety Report 21385250 (Version 1)
Quarter: 2022Q3

REPORT INFORMATION
  Report Type: Spontaneous
  Country: US (occurrence: US)
  Receive Date: 20220928
  Receipt Date: 20220928
  Transmission Date: 20221027
  Serious: No
  Sender: FDA-Public Use
  Company Number: US-GLAXOSMITHKLINE-USCH2022AMR034373

PATIENT
  Sex: Male
  Weight: 83.9 kg

DRUGS (4)
  1. ADVIL [Suspect]
     Active Substance: IBUPROFEN
     Indication: Pyrexia
     Dosage: 2-3 TIMES A DAY
     Dates: start: 20220831, end: 20220905
  2. ADVIL [Suspect]
     Active Substance: IBUPROFEN
     Indication: Chills
  3. PAXLOVID [Suspect]
     Active Substance: NIRMATRELVIR\RITONAVIR
     Indication: COVID-19
     Dosage: 10 MG, BID
     Dates: start: 20220831, end: 20220904
  4. AMLODIPINE\LOSARTAN [Suspect]
     Active Substance: AMLODIPINE\LOSARTAN
     Indication: Product used for unknown indication
     Dosage: UNK
     Dates: start: 20220831

REACTIONS (7)
  - Dysgeusia [Not Recovered/Not Resolved]
  - Oropharyngeal pain [Not Recovered/Not Resolved]
  - Asthenia [Not Recovered/Not Resolved]
  - Productive cough [Unknown]
  - Drug ineffective [Unknown]
  - Drug ineffective for unapproved indication [Unknown]
  - Product use in unapproved indication [Recovered/Resolved]

NARRATIVE: CASE EVENT DATE: 20220101
